FAERS Safety Report 19587158 (Version 1)
Quarter: 2021Q3

REPORT INFORMATION
  Report Type: Spontaneous
  Country: US (occurrence: US)
  Receive Date: 20210720
  Receipt Date: 20210720
  Transmission Date: 20211014
  Serious: Yes (Other)
  Sender: FDA-Public Use
  Company Number: None

PATIENT
  Age: 4 Year
  Sex: Female
  Weight: 16.2 kg

DRUGS (3)
  1. LIL CRITTERS OMEGA DHA [Concomitant]
  2. ZARBEES ELDERBERRY FOR KIDS [Concomitant]
  3. MIRALAX [Suspect]
     Active Substance: POLYETHYLENE GLYCOL 3350
     Indication: FAECALOMA
     Dates: start: 20210716, end: 20210719

REACTIONS (4)
  - Yawning [None]
  - Irritability [None]
  - Mood swings [None]
  - Pain in jaw [None]

NARRATIVE: CASE EVENT DATE: 20210718
